FAERS Safety Report 4389159-2 (Version None)
Quarter: 2004Q3

REPORT INFORMATION
  Report Type: 
  Country: None (occurrence: None)
  Receive Date: 20040702
  Receipt Date: 20040625
  Transmission Date: 20050211
  Serious: Yes (Hospitalization)
  Sender: FDA-Public Use
  Company Number: 200412484FR

PATIENT
  Age: 73 Year
  Sex: Male

DRUGS (4)
  1. FLAGYL [Suspect]
     Indication: CLOSTRIDIUM COLITIS
     Route: 048
     Dates: start: 20040619, end: 20040623
  2. TRIATEC [Concomitant]
  3. INSULINE NOS [Concomitant]
  4. UNKNOWN DRUG [Concomitant]

REACTIONS (4)
  - CONFUSIONAL STATE [None]
  - DISORIENTATION [None]
  - HALLUCINATION [None]
  - NERVOUSNESS [None]
